FAERS Safety Report 7788442-8 (Version None)
Quarter: 2011Q3

REPORT INFORMATION
  Report Type: 
  Country: None (occurrence: None)
  Receive Date: 20110928
  Receipt Date: 20110914
  Transmission Date: 20111222
  Serious: Yes (Other)
  Sender: FDA-Public Use
  Company Number: 2011SP043476

PATIENT
  Age: 20 Year
  Sex: Female
  Weight: 54.4316 kg

DRUGS (3)
  1. DULERA ORAL INHALATION [Suspect]
     Indication: ASTHMA
     Dosage: 2 DF; BID; INH, 2 DF; BID; INH
     Route: 055
     Dates: start: 20101201, end: 20110501
  2. DULERA ORAL INHALATION [Suspect]
     Indication: ASTHMA
     Dosage: 2 DF; BID; INH, 2 DF; BID; INH
     Route: 055
     Dates: start: 20110801, end: 20110912
  3. SINGULAIR [Concomitant]

REACTIONS (2)
  - CHEST PAIN [None]
  - HEART RATE INCREASED [None]
